FAERS Safety Report 6425703-9 (Version None)
Quarter: 2009Q4

REPORT INFORMATION
  Report Type: 
  Country: None (occurrence: None)
  Receive Date: 20091103
  Receipt Date: 20091022
  Transmission Date: 20100525
  Serious: Yes (Other)
  Sender: FDA-Public Use
  Company Number: PHHY2009FI45907

PATIENT
  Sex: Female

DRUGS (2)
  1. SANDIMMUNE [Suspect]
     Dosage: UNK
  2. PREDNISOLONE [Concomitant]
     Dosage: 15 MG, UNK

REACTIONS (1)
  - NEUTROPENIA [None]
